FAERS Safety Report 5839072-6 (Version None)
Quarter: 2008Q3

REPORT INFORMATION
  Report Type: 
  Country: None (occurrence: None)
  Receive Date: 20080808
  Receipt Date: 20080729
  Transmission Date: 20090109
  Serious: Yes (Other)
  Sender: FDA-Public Use
  Company Number: GB-PFIZER INC-2008065291

PATIENT
  Sex: Male

DRUGS (2)
  1. NICOTINE [Suspect]
     Route: 055
  2. NICOTINE [Suspect]
     Route: 062

REACTIONS (3)
  - ABDOMINAL PAIN UPPER [None]
  - ANXIETY [None]
  - DEPRESSION [None]
